FAERS Safety Report 6944673-8 (Version None)
Quarter: 2010Q3

REPORT INFORMATION
  Report Type: 
  Country: None (occurrence: None)
  Receive Date: 20100827
  Receipt Date: 20100827
  Transmission Date: 20110219
  Serious: Yes (Other)
  Sender: FDA-Public Use
  Company Number: US-ELI_LILLY_AND_COMPANY-US201005006169

PATIENT
  Age: 67 Year
  Sex: Male

DRUGS (5)
  1. PROZAC [Suspect]
     Indication: DEPRESSION
     Dosage: 20 MG, 2/D
  2. PROZAC [Suspect]
     Dosage: 20 MG, DAILY (1/D)
  3. PROZAC [Suspect]
     Dosage: 10 MG, DAILY (1/D)
  4. RISPERDAL [Concomitant]
     Dosage: 2 MG, EACH EVENING
  5. LORAZEPAM [Concomitant]
     Dosage: UNK, AS NEEDED

REACTIONS (1)
  - MYOCARDIAL ISCHAEMIA [None]
